FAERS Safety Report 12342138 (Version 1)
Quarter: 2016Q2

REPORT INFORMATION
  Report Type: Spontaneous
  Country: US (occurrence: US)
  Receive Date: 20160506
  Receipt Date: 20160506
  Transmission Date: 20160815
  Serious: No
  Sender: FDA-Public Use
  Company Number: US-ANACOR-2016ANA00037

PATIENT
  Age: 80 Year
  Sex: Female
  Weight: 68.93 kg

DRUGS (5)
  1. KERYDIN [Suspect]
     Active Substance: TAVABOROLE
     Indication: FUNGAL INFECTION
     Dosage: 1 GTT, 1X/DAY
     Route: 061
     Dates: start: 2015
  2. UNSPECIFIED VITAMINS [Concomitant]
     Active Substance: VITAMINS
  3. SILICA [Suspect]
     Active Substance: SILICON DIOXIDE
     Dosage: 2 DOSAGE UNITS, 1X/DAY
     Dates: start: 201601, end: 20160131
  4. PREDNISONE. [Concomitant]
     Active Substance: PREDNISONE
     Dosage: 1 MG, 1X/DAY
  5. ATORVASTATIN [Concomitant]
     Active Substance: ATORVASTATIN
     Dosage: 20 MG, 1X/DAY

REACTIONS (2)
  - Nipple disorder [Not Recovered/Not Resolved]
  - Rash erythematous [Recovering/Resolving]

NARRATIVE: CASE EVENT DATE: 20160125
